FAERS Safety Report 7434711-0 (Version None)
Quarter: 2011Q2

REPORT INFORMATION
  Report Type: 
  Country: None (occurrence: None)
  Receive Date: 20110415
  Receipt Date: 20110404
  Transmission Date: 20111010
  Serious: Yes (Other)
  Sender: FDA-Public Use
  Company Number: 1000020062

PATIENT
  Sex: Female

DRUGS (1)
  1. CITALOPRAM HYDROBROMIDE [Suspect]
     Dosage: 10 MG (10 MG, 1 IN 1 D), ORAL
     Route: 048
     Dates: start: 20110308

REACTIONS (5)
  - PANIC ATTACK [None]
  - NERVOUSNESS [None]
  - HYPOTENSION [None]
  - DRUG HYPERSENSITIVITY [None]
  - ANXIETY [None]
